FAERS Safety Report 5051686-2 (Version None)
Quarter: 2006Q3

REPORT INFORMATION
  Report Type: 
  Country: None (occurrence: None)
  Receive Date: 20060714
  Receipt Date: 20060704
  Transmission Date: 20061208
  Serious: Yes (Death, Hospitalization)
  Sender: FDA-Public Use
  Company Number: IT-BRISTOL-MYERS SQUIBB COMPANY-13432067

PATIENT
  Age: 35 Year
  Sex: Female

DRUGS (5)
  1. ABILIFY [Suspect]
     Indication: SCHIZOPHRENIA, PARANOID TYPE
     Route: 048
     Dates: start: 20060616, end: 20060628
  2. ZYPREXA [Suspect]
     Indication: SCHIZOPHRENIA, PARANOID TYPE
     Dates: start: 20040520, end: 20060629
  3. AMARYL [Suspect]
     Indication: BLOOD GLUCOSE
     Route: 048
     Dates: end: 20060630
  4. VALIUM [Concomitant]
     Dates: start: 20060629
  5. ZOLOFT [Concomitant]
     Dates: start: 20040618

REACTIONS (1)
  - COMPLETED SUICIDE [None]
